FAERS Safety Report 14054862 (Version 2)
Quarter: 2017Q4

REPORT INFORMATION
  Report Type: Spontaneous
  Country: ES (occurrence: ES)
  Receive Date: 20171006
  Receipt Date: 20171012
  Transmission Date: 20180321
  Serious: Yes (Other)
  Sender: FDA-Public Use
  Company Number: ES-AUROBINDO-AUR-APL-2017-41163

PATIENT
  Age: 37 Year
  Sex: Male

DRUGS (1)
  1. PIPERACILLIN+TAZOBACTAM AUROVITAS [Suspect]
     Active Substance: PIPERACILLIN SODIUM\TAZOBACTAM SODIUM
     Indication: ANTIBIOTIC PROPHYLAXIS

REACTIONS (6)
  - Leukopenia [Unknown]
  - Hypersensitivity [Recovered/Resolved]
  - Transaminases increased [Unknown]
  - Myalgia [Recovering/Resolving]
  - Neutropenia [Recovering/Resolving]
  - Pyrexia [Recovered/Resolved]
